FAERS Safety Report 26184180 (Version 1)
Quarter: 2025Q4

REPORT INFORMATION
  Report Type: Spontaneous
  Country: CN (occurrence: CN)
  Receive Date: 20251222
  Receipt Date: 20251222
  Transmission Date: 20260118
  Serious: Yes (Other)
  Sender: PHARMOBEDIENT CONSULTING, LLC
  Company Number: CN-Pharmobedient-000689

PATIENT
  Age: 39 Year
  Sex: Male
  Weight: 0 kg

DRUGS (2)
  1. OXALIPLATIN [Suspect]
     Active Substance: OXALIPLATIN
     Indication: Adenocarcinoma gastric
     Dosage: 6 CYCLES, DAY 1
     Dates: start: 20221208
  2. CAPECITABINE [Suspect]
     Active Substance: CAPECITABINE
     Indication: Adenocarcinoma gastric
     Dosage: 6 CYCLES, DAYS 1-14
     Dates: start: 20221208

REACTIONS (14)
  - Neutropenia [Recovered/Resolved]
  - Thrombocytopenia [Recovered/Resolved]
  - Leukopenia [Recovered/Resolved]
  - Anaemia [Recovered/Resolved]
  - Abdominal pain [Recovered/Resolved]
  - Impaired gastric emptying [Recovered/Resolved]
  - Constipation [Recovered/Resolved]
  - Lymphopenia [Recovered/Resolved]
  - Hyperbilirubinaemia [Recovered/Resolved]
  - Vomiting [Recovered/Resolved]
  - Nausea [Recovered/Resolved]
  - Faecal occult blood positive [Recovered/Resolved]
  - Urinary occult blood positive [Recovered/Resolved]
  - Aspartate aminotransferase increased [Recovered/Resolved]

NARRATIVE: CASE EVENT DATE: 20230101
